FAERS Safety Report 10457457 (Version 1)
Quarter: 2014Q3

REPORT INFORMATION
  Report Type: Spontaneous
  Country: IR (occurrence: IR)
  Receive Date: 20140916
  Receipt Date: 20140916
  Transmission Date: 20150326
  Serious: Yes (Hospitalization)
  Sender: FDA-Public Use
  Company Number: IR-MYLAN-2014M1004519

PATIENT

DRUGS (1)
  1. METHADONE [Suspect]
     Active Substance: METHADONE HYDROCHLORIDE
     Route: 048

REACTIONS (14)
  - Agitation [Recovering/Resolving]
  - Miosis [None]
  - Restlessness [Recovering/Resolving]
  - Accidental exposure to product by child [None]
  - Toxicity to various agents [Recovering/Resolving]
  - Stridor [Recovering/Resolving]
  - Breath sounds abnormal [None]
  - Respiratory arrest [Recovered/Resolved]
  - Tonsillar inflammation [None]
  - Respiratory acidosis [None]
  - Accidental exposure to product [Recovering/Resolving]
  - Confusional state [Recovering/Resolving]
  - Hyporesponsive to stimuli [None]
  - Drug screen positive [None]
